FAERS Safety Report 4365164-7 (Version None)
Quarter: 2004Q2

REPORT INFORMATION
  Report Type: 
  Country: None (occurrence: None)
  Receive Date: 20040525
  Receipt Date: 20040226
  Transmission Date: 20050107
  Serious: No
  Sender: FDA-Public Use
  Company Number: PHEH2004US02437

PATIENT
  Age: 55 Year
  Sex: Female

DRUGS (3)
  1. ZELNORM [Suspect]
     Indication: CONSTIPATION
     Dosage: 6 MG BID ORAL
     Route: 048
     Dates: start: 20031001
  2. LIPITOR [Concomitant]
  3. VITAMINS NOS (VITAMINS NOS) [Concomitant]

REACTIONS (2)
  - ALOPECIA [None]
  - HYPOTRICHOSIS [None]
